FAERS Safety Report 23037169 (Version 1)
Quarter: 2023Q4

REPORT INFORMATION
  Report Type: Spontaneous
  Country: DK (occurrence: DK)
  Receive Date: 20231006
  Receipt Date: 20231006
  Transmission Date: 20240110
  Serious: Yes (Other)
  Sender: FDA-Public Use
  Company Number: DK-ALKEM LABORATORIES LIMITED-DK-ALKEM-2023-10032

PATIENT
  Age: 30 Year
  Sex: Male

DRUGS (2)
  1. ACETAMINOPHEN [Suspect]
     Active Substance: ACETAMINOPHEN
     Indication: Product used for unknown indication
     Dosage: UNK (PANODIL ZAPP, ANALGESIC TABLET (PEG  6000))
     Route: 065
  2. IBUPROFEN [Suspect]
     Active Substance: IBUPROFEN
     Indication: Product used for unknown indication
     Dosage: UNK, BURANA TABLET (PEG 6000)
     Route: 065

REACTIONS (5)
  - Anaphylactic reaction [Unknown]
  - Oedema peripheral [Unknown]
  - Pruritus [Unknown]
  - Urticaria [Unknown]
  - Oropharyngeal swelling [Unknown]
